FAERS Safety Report 8900618 (Version 1)
Quarter: 2012Q4

REPORT INFORMATION
  Report Type: 
  Country: CA (occurrence: CA)
  Receive Date: 20121109
  Receipt Date: 20121109
  Transmission Date: 20130627
  Serious: Yes (Other)
  Sender: FDA-Public Use
  Company Number: PHMT2006CA01058

PATIENT
  Sex: Female

DRUGS (1)
  1. SANDOSTATIN LAR [Suspect]
     Indication: ACROMEGALY
     Dosage: 20 mg, QMO
     Dates: start: 20060119

REACTIONS (7)
  - Upper respiratory tract congestion [Unknown]
  - Oropharyngeal pain [Unknown]
  - Pyrexia [Unknown]
  - Blood pressure decreased [Unknown]
  - Constipation [Unknown]
  - Rash [Unknown]
  - Headache [Unknown]
